FAERS Safety Report 8799916 (Version 1)
Quarter: 2012Q4

REPORT INFORMATION
  Report Type: Spontaneous
  Country: US (occurrence: None)
  Receive Date: 20120917
  Receipt Date: 20120917
  Transmission Date: 20130627
  Serious: Yes (Disabling)
  Sender: FDA-Public Use
  Company Number: CL-442-2012

PATIENT
  Age: 36 Year

DRUGS (2)
  1. METRONIDAZOLE [Suspect]
     Indication: DENTAL TREATMENT
     Route: 048
  2. BECONASE [Concomitant]

REACTIONS (5)
  - Mental disorder [None]
  - Psychotic disorder [None]
  - Optic neuritis [None]
  - Tinnitus [None]
  - Mental disorder [None]
